FAERS Safety Report 8267113-8 (Version None)
Quarter: 2012Q2

REPORT INFORMATION
  Report Type: 
  Country: None (occurrence: None)
  Receive Date: 20120409
  Receipt Date: 20120328
  Transmission Date: 20120825
  Serious: Yes (Hospitalization, Other)
  Sender: FDA-Public Use
  Company Number: US-CELGENEUS-163-21880-12011600

PATIENT
  Sex: Male
  Weight: 99.063 kg

DRUGS (27)
  1. VITAMIN D [Concomitant]
     Route: 065
  2. LORAZEPAM [Concomitant]
     Route: 065
  3. POLYETHYLENE GLYCOL [Concomitant]
     Route: 065
  4. DOXAZOSIN MESYLATE [Concomitant]
     Route: 065
  5. LOVAZA [Concomitant]
     Route: 065
  6. VITAMIN-MINERAL COMPOUND TAB [Concomitant]
     Route: 065
  7. CILOXAN [Concomitant]
     Route: 065
  8. FINASTERIDE [Concomitant]
     Route: 065
  9. PANTOPRAZOLE [Concomitant]
     Route: 065
  10. TEMAZEPAM [Concomitant]
     Route: 065
  11. ZOLEDRONIC ACID [Concomitant]
     Route: 065
  12. ALBUTEROL [Concomitant]
     Route: 065
  13. GABAPENTIN [Concomitant]
     Route: 065
  14. OXYCODONE HCL [Concomitant]
     Route: 065
  15. CAPLUTEIN [Concomitant]
     Route: 065
  16. VITAMIN B-12 [Concomitant]
     Route: 065
  17. WARFARIN SODIUM [Concomitant]
     Route: 065
  18. DEXAMETHASONE [Concomitant]
     Route: 065
  19. REVLIMID [Suspect]
     Indication: MULTIPLE MYELOMA
     Dosage: 15 MILLIGRAM
     Route: 048
     Dates: start: 20110314
  20. OSTEO BI-FLEX [Concomitant]
     Route: 065
  21. VITAMIN B6 [Concomitant]
     Route: 065
  22. ALLOPURINOL [Concomitant]
     Route: 065
  23. AUGMENTIN '125' [Concomitant]
     Route: 065
  24. FUROSEMIDE [Concomitant]
     Route: 065
  25. METOPROLOL TARTRATE [Concomitant]
     Route: 065
  26. AMITRIPTYLINE HCL [Concomitant]
     Route: 065
  27. RED BLOOD CELLS [Concomitant]
     Route: 041
     Dates: start: 20110501

REACTIONS (3)
  - SQUAMOUS CELL CARCINOMA OF SKIN [None]
  - PYREXIA [None]
  - NEUTROPENIA [None]
